FAERS Safety Report 4855605-0 (Version None)
Quarter: 2005Q4

REPORT INFORMATION
  Report Type: 
  Country: None (occurrence: None)
  Receive Date: 20051216
  Receipt Date: 20050208
  Transmission Date: 20060501
  Serious: Yes (Death, Life-Threatening, Hospitalization, Other)
  Sender: FDA-Public Use
  Company Number: GB-BRISTOL-MYERS SQUIBB COMPANY-12855540

PATIENT
  Age: 75 Year
  Sex: Male

DRUGS (7)
  1. ABILIFY [Suspect]
     Indication: PSYCHOTIC DISORDER
     Route: 048
     Dates: start: 20050128, end: 20050130
  2. ASPIRIN [Concomitant]
  3. SIMVASTATIN [Concomitant]
     Indication: BLOOD CHOLESTEROL INCREASED
     Route: 048
     Dates: end: 20050301
  4. THIAMINE [Concomitant]
     Dates: end: 20050301
  5. AMISULPRIDE [Concomitant]
     Indication: PSYCHOTIC DISORDER
     Dates: start: 20041129, end: 20041201
  6. BISOPROLOL [Concomitant]
     Route: 048
  7. ADCAL-D3 [Concomitant]

REACTIONS (4)
  - CATATONIA [None]
  - LUNG NEOPLASM MALIGNANT [None]
  - RESPIRATORY DEPRESSION [None]
  - SEDATION [None]
